FAERS Safety Report 7128090-6 (Version None)
Quarter: 2010Q4

REPORT INFORMATION
  Report Type: 
  Country: None (occurrence: None)
  Receive Date: 20101112
  Receipt Date: 20101103
  Transmission Date: 20110411
  Serious: Yes (Hospitalization)
  Sender: FDA-Public Use
  Company Number: 2010SP019048

PATIENT
  Age: 24 Year
  Sex: Female
  Weight: 59.8748 kg

DRUGS (1)
  1. NUVARING [Suspect]
     Indication: CONTRACEPTION
     Dates: start: 20080228, end: 20080401

REACTIONS (4)
  - ANXIETY [None]
  - HYPERCOAGULATION [None]
  - MENTAL DISORDER [None]
  - PULMONARY EMBOLISM [None]
